FAERS Safety Report 11433140 (Version 2)
Quarter: 2015Q4

REPORT INFORMATION
  Report Type: Report from Study
  Country: ZA (occurrence: ZA)
  Receive Date: 20150829
  Receipt Date: 20151120
  Transmission Date: 20160304
  Serious: Yes (Hospitalization, Other)
  Sender: FDA-Public Use
  Company Number: ZA-AUROBINDO-AUR-APL-2015-07745

PATIENT
  Age: 24 Year
  Sex: Female

DRUGS (3)
  1. CEFTRIAXONE. [Concomitant]
     Active Substance: CEFTRIAXONE
     Indication: PRODUCT USED FOR UNKNOWN INDICATION
     Route: 065
  2. AMPICILLIN [Concomitant]
     Active Substance: AMPICILLIN
     Indication: PRODUCT USED FOR UNKNOWN INDICATION
     Route: 065
  3. NEVIRAPINE. [Suspect]
     Active Substance: NEVIRAPINE
     Indication: ANTIVIRAL TREATMENT
     Route: 065

REACTIONS (4)
  - Viral load increased [Recovered/Resolved]
  - Stevens-Johnson syndrome [Recovered/Resolved]
  - Liver disorder [Recovered/Resolved]
  - Maternal exposure during pregnancy [Recovered/Resolved]
